FAERS Safety Report 20822534 (Version 1)
Quarter: 2022Q2

REPORT INFORMATION
  Report Type: Other
  Country: IN (occurrence: IN)
  Receive Date: 20220512
  Receipt Date: 20220512
  Transmission Date: 20220721
  Serious: Yes (Hospitalization)
  Sender: FDA-Public Use
  Company Number: IN-Genus_Lifesciences-USA-POI0580202200156

PATIENT
  Age: 62 Year
  Sex: Male

DRUGS (2)
  1. LEVETIRACETAM [Suspect]
     Active Substance: LEVETIRACETAM
     Dates: start: 2021, end: 2021
  2. LEVETIRACETAM [Suspect]
     Active Substance: LEVETIRACETAM

REACTIONS (5)
  - Intentional overdose [Recovered/Resolved]
  - Polyneuropathy [Recovered/Resolved]
  - Suicidal ideation [Recovered/Resolved]
  - Suicidal behaviour [Recovered/Resolved]
  - Renal impairment [Recovered/Resolved]

NARRATIVE: CASE EVENT DATE: 20210101
